FAERS Safety Report 5964608-4 (Version None)
Quarter: 2008Q4

REPORT INFORMATION
  Report Type: 
  Country: None (occurrence: None)
  Receive Date: 20081120
  Receipt Date: 20081107
  Transmission Date: 20090506
  Serious: Yes (Death, Hospitalization)
  Sender: FDA-Public Use
  Company Number: GXKR2008GB10760

PATIENT
  Age: 36 Year
  Sex: Female

DRUGS (1)
  1. ACETAMINOPHEN [Suspect]

REACTIONS (4)
  - ACUTE HEPATIC FAILURE [None]
  - DRUG TOXICITY [None]
  - LIVER TRANSPLANT [None]
  - SUDDEN DEATH [None]
